FAERS Safety Report 24458829 (Version 1)
Quarter: 2024Q4

REPORT INFORMATION
  Report Type: Spontaneous
  Country: IT (occurrence: IT)
  Receive Date: 20241018
  Receipt Date: 20241018
  Transmission Date: 20250114
  Serious: No
  Sender: ROCHE
  Company Number: IT-ROCHE-3525050

PATIENT
  Age: 47 Year
  Sex: Female
  Weight: 55.0 kg

DRUGS (4)
  1. RITUXIMAB [Suspect]
     Active Substance: RITUXIMAB
     Indication: Burkitt^s lymphoma
     Route: 065
  2. METHOTREXATE [Suspect]
     Active Substance: METHOTREXATE
     Indication: Burkitt^s leukaemia
     Route: 065
     Dates: start: 20230721, end: 20231213
  3. CYTARABINE [Suspect]
     Active Substance: CYTARABINE
     Indication: Burkitt^s leukaemia
     Route: 065
  4. THIOTEPA [Suspect]
     Active Substance: THIOTEPA
     Indication: Burkitt^s leukaemia
     Route: 065

REACTIONS (2)
  - Off label use [Unknown]
  - No adverse event [Unknown]
